FAERS Safety Report 6366473-2 (Version None)
Quarter: 2009Q3

REPORT INFORMATION
  Report Type: 
  Country: None (occurrence: None)
  Receive Date: 20090921
  Receipt Date: 20090908
  Transmission Date: 20100115
  Serious: Yes (Death)
  Sender: FDA-Public Use
  Company Number: JP-ROCHE-656054

PATIENT
  Age: 60 Year
  Sex: Male

DRUGS (2)
  1. COPEGUS [Suspect]
     Indication: HEPATITIS C
     Route: 048
     Dates: start: 20090408, end: 20090907
  2. PEGASYS [Suspect]
     Indication: HEPATITIS C
     Route: 058
     Dates: start: 20090408, end: 20090907

REACTIONS (1)
  - CARDIAC FAILURE ACUTE [None]
